FAERS Safety Report 14019439 (Version 1)
Quarter: 2017Q3

REPORT INFORMATION
  Report Type: Spontaneous
  Country: US (occurrence: US)
  Receive Date: 20170928
  Receipt Date: 20170928
  Transmission Date: 20171128
  Serious: No
  Sender: FDA-Public Use
  Company Number: US-MYLANLABS-2017M1030257

PATIENT
  Age: 82 Year
  Sex: Female

DRUGS (1)
  1. NITROGLYCERIN TRANSDERMAL DELIVERY SYSTEM [Suspect]
     Active Substance: NITROGLYCERIN
     Indication: PRODUCT USED FOR UNKNOWN INDICATION
     Dosage: 0.4 MG, QH, QD
     Route: 062

REACTIONS (1)
  - Application site pruritus [Recovered/Resolved]

NARRATIVE: CASE EVENT DATE: 201705
